FAERS Safety Report 8600003-7 (Version None)
Quarter: 2012Q3

REPORT INFORMATION
  Report Type: 
  Country: None (occurrence: None)
  Receive Date: 20120816
  Receipt Date: 20120814
  Transmission Date: 20120928
  Serious: Yes (Other)
  Sender: FDA-Public Use
  Company Number: US-ROCHE-1058773

PATIENT
  Sex: Male
  Weight: 51.756 kg

DRUGS (2)
  1. AVASTIN [Suspect]
     Indication: COLORECTAL CANCER METASTATIC
     Route: 042
     Dates: start: 20120301
  2. XELODA [Suspect]
     Indication: COLORECTAL CANCER METASTATIC
     Dosage: 2000MG IN MORNING, 1500 MG IN NIGHT
     Route: 048
     Dates: start: 20120301, end: 20120701

REACTIONS (14)
  - NAUSEA [None]
  - HYPOAESTHESIA [None]
  - SKIN EXFOLIATION [None]
  - DRY SKIN [None]
  - DYSGEUSIA [None]
  - FEELING HOT [None]
  - DIARRHOEA [None]
  - PROTEIN URINE [None]
  - FATIGUE [None]
  - ERYTHEMA [None]
  - SKIN DISCOLOURATION [None]
  - PAIN IN EXTREMITY [None]
  - DECREASED APPETITE [None]
  - PERIPHERAL COLDNESS [None]
